FAERS Safety Report 20723993 (Version 1)
Quarter: 2022Q2

REPORT INFORMATION
  Report Type: Spontaneous
  Country: US (occurrence: US)
  Receive Date: 20220419
  Receipt Date: 20220419
  Transmission Date: 20220720
  Serious: No
  Sender: FDA-Public Use
  Company Number: US-NOVARTISTESTPH-NVSC2022US090193

PATIENT
  Sex: Male

DRUGS (4)
  1. TAFINLAR [Suspect]
     Active Substance: DABRAFENIB MESYLATE
     Indication: Skin cancer
     Dosage: 150 MG, Q12H
     Route: 048
     Dates: start: 202204
  2. TAFINLAR [Suspect]
     Active Substance: DABRAFENIB MESYLATE
     Dosage: 100 MG, BID
     Route: 065
  3. MEKINIST [Suspect]
     Active Substance: TRAMETINIB DIMETHYL SULFOXIDE
     Indication: Skin cancer
     Dosage: 2 MG, TID
     Route: 048
     Dates: start: 202204
  4. MEKINIST [Suspect]
     Active Substance: TRAMETINIB DIMETHYL SULFOXIDE
     Dosage: 0.75 MG, QD
     Route: 065

REACTIONS (4)
  - Poor quality sleep [Unknown]
  - Pyrexia [Unknown]
  - Liver function test abnormal [Unknown]
  - Vision blurred [Unknown]
